FAERS Safety Report 7109622-0 (Version None)
Quarter: 2010Q4

REPORT INFORMATION
  Report Type: 
  Country: None (occurrence: None)
  Receive Date: 20101115
  Receipt Date: 20101115
  Transmission Date: 20110411
  Serious: Yes (Hospitalization)
  Sender: FDA-Public Use
  Company Number: None

PATIENT
  Age: 12 Year
  Sex: Male
  Weight: 61.2356 kg

DRUGS (1)
  1. SOLODYN [Suspect]
     Indication: ACNE
     Dosage: 80 MG ONCE PER DAY PO
     Route: 048
     Dates: start: 20101109, end: 20101109

REACTIONS (1)
  - CONVULSION [None]
